FAERS Safety Report 12802957 (Version 8)
Quarter: 2020Q1

REPORT INFORMATION
  Report Type: Spontaneous
  Country: US (occurrence: US)
  Receive Date: 20161003
  Receipt Date: 20200303
  Transmission Date: 20200409
  Serious: Yes (Other)
  Sender: FDA-Public Use
  Company Number: US-PFIZER INC-2016460727

PATIENT
  Age: 77 Year
  Sex: Female
  Weight: 53.7 kg

DRUGS (2)
  1. XELJANZ [Suspect]
     Active Substance: TOFACITINIB CITRATE
     Indication: RHEUMATOID ARTHRITIS
     Dosage: 5 MG, TWICE A DAY
     Route: 048
     Dates: start: 2015, end: 20180501
  2. XELJANZ [Suspect]
     Active Substance: TOFACITINIB CITRATE
     Indication: ARTHRITIS
     Dosage: 5 MG, TWICE A DAY (ONCE IN MORNING AND ONCE AT NIGHT)
     Route: 048

REACTIONS (3)
  - Urinary tract infection [Unknown]
  - Kidney infection [Unknown]
  - Blindness [Unknown]

NARRATIVE: CASE EVENT DATE: 20160901
